FAERS Safety Report 7987202-2 (Version None)
Quarter: 2011Q4

REPORT INFORMATION
  Report Type: 
  Country: None (occurrence: None)
  Receive Date: 20111216
  Receipt Date: 20111216
  Transmission Date: 20120403
  Serious: Yes (Hospitalization)
  Sender: FDA-Public Use
  Company Number: DE-BAYER-200938255GPV

PATIENT
  Age: 68 Year
  Sex: Male
  Weight: 77 kg

DRUGS (8)
  1. GEMCITABINE [Suspect]
     Indication: BILE DUCT CANCER
     Route: 041
     Dates: start: 20081104
  2. DERMATOLOGICALS [Concomitant]
     Indication: PALMAR-PLANTAR ERYTHRODYSAESTHESIA SYNDROME
     Route: 059
     Dates: start: 20090127
  3. TINZAPARIN [Concomitant]
     Dosage: 0.7 ML (DAILY DOSE), , SUBCUTANEOUS
     Route: 058
  4. BISOPROLOL FUMARATE [Concomitant]
     Indication: ATRIAL FIBRILLATION
     Route: 048
     Dates: start: 20090818
  5. DEXAMETHASONE SODIUM PHOSPHATE [Concomitant]
     Indication: PROPHYLAXIS OF NAUSEA AND VOMITING
     Route: 042
  6. GRANISETRON [Concomitant]
     Indication: PROPHYLAXIS OF NAUSEA AND VOMITING
     Route: 042
     Dates: start: 20090210
  7. INNOHEP [Concomitant]
     Indication: ATRIAL FIBRILLATION
     Route: 058
     Dates: start: 20090811
  8. SORAFENIB (RAF KINASE INHIBITOR) [Suspect]
     Indication: BILE DUCT CANCER
     Dosage: 800 MG (DAILY DOSE), , ORAL
     Route: 048
     Dates: start: 20081104

REACTIONS (1)
  - ATRIAL FIBRILLATION [None]
